FAERS Safety Report 5245842-8 (Version None)
Quarter: 2007Q1

REPORT INFORMATION
  Report Type: 
  Country: None (occurrence: None)
  Receive Date: 20070216
  Receipt Date: 20070206
  Transmission Date: 20070707
  Serious: Yes (Other)
  Sender: FDA-Public Use
  Company Number: 152628USA

PATIENT
  Age: 48 Year
  Sex: Male

DRUGS (4)
  1. FLUOROURACIL [Suspect]
     Indication: METASTATIC NEOPLASM
     Dosage: 4000 MILLIGRAM, INTRAVENOUS (NOT OTHERWISE SPECIFIED)
     Route: 042
     Dates: start: 20061011, end: 20061011
  2. FOLINIC ACID [Suspect]
     Indication: METASTATIC NEOPLASM
     Dosage: 800 MILLIGRAM, INTRAVENOUS (NOT OTHERWISE SPECIFIED)
     Route: 042
     Dates: start: 20061009, end: 20061009
  3. BMS582664 (BMS582664-INVESTIGATIONAL) [Suspect]
     Indication: METASTATIC NEOPLASM
     Dosage: 180 MILLIGRAM, 1 DAY, ORAL
     Route: 048
     Dates: start: 20060808, end: 20061020
  4. IRINOTECAN HCL [Suspect]
     Indication: METASTATIC NEOPLASM
     Dosage: 360 MILLIGRAM, INTRAVENOUS (NOT OTHERWISE SPECIFIED)
     Route: 042
     Dates: start: 20061009, end: 20061009

REACTIONS (5)
  - INTERNATIONAL NORMALISED RATIO DECREASED [None]
  - NO THERAPEUTIC RESPONSE [None]
  - PARANASAL SINUS HYPERSECRETION [None]
  - PLATELET COUNT DECREASED [None]
  - PULMONARY EMBOLISM [None]
